FAERS Safety Report 4956237-6 (Version None)
Quarter: 2006Q1

REPORT INFORMATION
  Report Type: 
  Country: None (occurrence: None)
  Receive Date: 20060329
  Receipt Date: 20060321
  Transmission Date: 20060701
  Serious: Yes (Other)
  Sender: FDA-Public Use
  Company Number: US-JNJFOC-20060306156

PATIENT
  Sex: Male
  Weight: 58.97 kg

DRUGS (6)
  1. FENTANYL [Suspect]
     Route: 062
  2. NEURONTIN [Concomitant]
     Indication: NEUROPATHY
     Route: 048
  3. NEURONTIN [Concomitant]
     Route: 048
  4. ZOLOFT [Concomitant]
     Indication: DEPRESSION
     Route: 048
  5. LAMICTAL [Concomitant]
     Route: 048
  6. SEROQUEL [Concomitant]
     Indication: RELAXATION THERAPY
     Route: 048

REACTIONS (3)
  - CONVULSION [None]
  - INSOMNIA [None]
  - ROAD TRAFFIC ACCIDENT [None]
